FAERS Safety Report 7067668-5 (Version None)
Quarter: 2010Q4

REPORT INFORMATION
  Report Type: 
  Country: None (occurrence: None)
  Receive Date: 20101028
  Receipt Date: 20101020
  Transmission Date: 20110411
  Serious: Yes (Other)
  Sender: FDA-Public Use
  Company Number: US-BAYER-201038021NA

PATIENT
  Sex: Female

DRUGS (2)
  1. YASMIN [Suspect]
     Indication: ACNE
     Route: 048
     Dates: start: 20050701, end: 20060401
  2. YASMIN [Suspect]
     Route: 048
     Dates: start: 20061201, end: 20070701

REACTIONS (1)
  - DEEP VEIN THROMBOSIS [None]
